FAERS Safety Report 20762401 (Version 4)
Quarter: 2022Q3

REPORT INFORMATION
  Report Type: Spontaneous
  Country: US (occurrence: US)
  Receive Date: 20220428
  Receipt Date: 20220907
  Transmission Date: 20221026
  Serious: Yes (Other)
  Sender: FDA-Public Use
  Company Number: US-PFIZER INC-202200365988

PATIENT
  Age: 78 Year
  Sex: Female
  Weight: 99.773 kg

DRUGS (1)
  1. IBRANCE [Suspect]
     Active Substance: PALBOCICLIB
     Indication: Breast cancer female
     Dosage: 100 MG

REACTIONS (6)
  - Dementia [Unknown]
  - Upper limb fracture [Unknown]
  - Overweight [Unknown]
  - Fall [Unknown]
  - Injury [Unknown]
  - Memory impairment [Unknown]
